FAERS Safety Report 5046221-9 (Version None)
Quarter: 2006Q3

REPORT INFORMATION
  Report Type: 
  Country: None (occurrence: None)
  Receive Date: 20060710
  Receipt Date: 20060405
  Transmission Date: 20061208
  Serious: Yes (Hospitalization)
  Sender: FDA-Public Use
  Company Number: 2006UW06066

PATIENT
  Age: 26268 Day
  Sex: Male
  Weight: 125 kg

DRUGS (12)
  1. SEROQUEL [Suspect]
     Indication: SLEEP DISORDER
     Route: 048
     Dates: start: 20060226, end: 20060228
  2. LISINOPRIL [Concomitant]
  3. GABITRIL [Concomitant]
     Dosage: 1 MG QAM,1MG QNOON,2MG QPM PO
     Route: 048
  4. ACTOS [Concomitant]
     Route: 048
  5. LASIX [Concomitant]
     Route: 048
  6. POTASSIUM CHLORIDE [Concomitant]
     Route: 048
  7. KLONOPIN [Concomitant]
     Route: 048
  8. ULTRAM [Concomitant]
     Route: 048
  9. HUMULIN 70/30 [Concomitant]
     Route: 058
  10. LOPID [Concomitant]
     Route: 048
  11. LUPRON [Concomitant]
     Route: 030
  12. SYNTHROID [Concomitant]
     Route: 048

REACTIONS (8)
  - BONE DENSITY DECREASED [None]
  - CAROTID ARTERY STENOSIS [None]
  - COMMINUTED FRACTURE [None]
  - CONFUSIONAL STATE [None]
  - FALL [None]
  - FRACTURE DISPLACEMENT [None]
  - INSOMNIA [None]
  - UPPER LIMB FRACTURE [None]
